FAERS Safety Report 8228813-9 (Version None)
Quarter: 2012Q1

REPORT INFORMATION
  Report Type: 
  Country: None (occurrence: None)
  Receive Date: 20120322
  Receipt Date: 20120312
  Transmission Date: 20120608
  Serious: Yes (Hospitalization)
  Sender: FDA-Public Use
  Company Number: JP-GLAXOSMITHKLINE-B0673537A

PATIENT
  Sex: Male

DRUGS (9)
  1. OLMESARTAN MEDOXOMIL [Concomitant]
     Indication: HYPERLIPIDAEMIA
     Dosage: 20MG PER DAY
     Route: 048
     Dates: start: 20070101, end: 20100906
  2. LIPITOR [Concomitant]
     Indication: HYPERLIPIDAEMIA
     Dosage: 10MG PER DAY
     Route: 048
     Dates: start: 20070101, end: 20100906
  3. PHENOBARBITAL TAB [Concomitant]
     Dosage: 1IUAX PER DAY
     Dates: start: 20070101
  4. FAMOTIDINE [Concomitant]
     Indication: GASTRITIS
     Dosage: 20MG PER DAY
     Route: 048
     Dates: start: 20070101, end: 20100906
  5. CETIRIZINE HYDROCHLORIDE [Concomitant]
     Indication: RHINITIS ALLERGIC
     Dosage: 10MG PER DAY
     Route: 048
     Dates: start: 20070101, end: 20100906
  6. AMLODIPINE [Concomitant]
     Indication: HYPERTENSION
     Dosage: 5MG PER DAY
     Route: 048
     Dates: end: 20100906
  7. LAMICTAL [Suspect]
     Indication: EPILEPSY
     Dosage: 25MG PER DAY
     Route: 048
     Dates: start: 20100816, end: 20100906
  8. DEPAKENE [Concomitant]
     Indication: EPILEPSY
     Dosage: 675MG PER DAY
     Route: 048
     Dates: start: 20070101, end: 20100907
  9. WARFARIN SODIUM [Concomitant]
     Route: 048
     Dates: start: 20070101

REACTIONS (22)
  - WHITE BLOOD CELL COUNT INCREASED [None]
  - EOSINOPHIL COUNT DECREASED [None]
  - ASPARTATE AMINOTRANSFERASE INCREASED [None]
  - RED BLOOD CELL COUNT DECREASED [None]
  - LYMPHOCYTE PERCENTAGE DECREASED [None]
  - GAMMA-GLUTAMYLTRANSFERASE INCREASED [None]
  - ERYTHEMA [None]
  - NEUTROPHIL PERCENTAGE INCREASED [None]
  - BLOOD LACTATE DEHYDROGENASE INCREASED [None]
  - RASH [None]
  - TOXIC EPIDERMAL NECROLYSIS [None]
  - C-REACTIVE PROTEIN INCREASED [None]
  - ORAL MUCOSA EROSION [None]
  - PYREXIA [None]
  - BLOOD ALKALINE PHOSPHATASE INCREASED [None]
  - PROTEIN TOTAL DECREASED [None]
  - STEVENS-JOHNSON SYNDROME [None]
  - SKIN EROSION [None]
  - BLISTER [None]
  - MONOCYTE PERCENTAGE INCREASED [None]
  - ALANINE AMINOTRANSFERASE INCREASED [None]
  - BLOOD ALBUMIN DECREASED [None]
